FAERS Safety Report 8961142 (Version 1)
Quarter: 2012Q4

REPORT INFORMATION
  Report Type: 
  Country: US (occurrence: US)
  Receive Date: 20121213
  Receipt Date: 20121213
  Transmission Date: 20130627
  Serious: No
  Sender: FDA-Public Use
  Company Number: US-ALLERGAN-1214197US

PATIENT
  Sex: Male

DRUGS (3)
  1. LUMIGAN� 0.01% [Suspect]
     Indication: GLAUCOMA
     Dosage: UNK UNK, qhs
     Route: 047
     Dates: start: 201103
  2. MEDICATIONS NOS [Concomitant]
     Indication: HYPERTENSION
  3. MEDICATIONS NOS [Concomitant]
     Indication: DIABETES

REACTIONS (2)
  - Vertigo [Not Recovered/Not Resolved]
  - Dizziness [Not Recovered/Not Resolved]
